FAERS Safety Report 10019022 (Version 2)
Quarter: 2014Q2

REPORT INFORMATION
  Report Type: Spontaneous
  Country: US (occurrence: US)
  Receive Date: 20140318
  Receipt Date: 20140414
  Transmission Date: 20141212
  Serious: Yes (Other)
  Sender: FDA-Public Use
  Company Number: US-JNJFOC-20140306533

PATIENT
  Age: 61 Year
  Sex: Male
  Weight: 97.3 kg

DRUGS (1)
  1. RIVAROXABAN [Suspect]
     Indication: THROMBOSIS PROPHYLAXIS
     Route: 048
     Dates: start: 20130822, end: 20130902

REACTIONS (4)
  - Pelvic venous thrombosis [Unknown]
  - Peripheral swelling [Unknown]
  - Treatment failure [Unknown]
  - Incorrect dose administered [Unknown]
